FAERS Safety Report 8537085-7 (Version None)
Quarter: 2012Q3

REPORT INFORMATION
  Report Type: 
  Country: None (occurrence: None)
  Receive Date: 20120725
  Receipt Date: 20120716
  Transmission Date: 20120928
  Serious: Yes (Hospitalization)
  Sender: FDA-Public Use
  Company Number: RU-CELGENEUS-251-50794-11111684

PATIENT
  Sex: Female
  Weight: 75 kg

DRUGS (5)
  1. VIDAZA [Suspect]
     Dosage: 66.5 MILLIGRAM
     Route: 065
  2. VIDAZA [Suspect]
     Indication: MYELODYSPLASTIC SYNDROME
     Dosage: 70 MILLIGRAM
     Route: 065
     Dates: start: 20111006, end: 20111012
  3. VIDAZA [Suspect]
     Route: 065
     Dates: start: 20120110, end: 20120116
  4. VIDAZA [Suspect]
     Dosage: 65 MILLIGRAM
     Route: 065
     Dates: start: 20111201, end: 20111207
  5. LATRAN [Concomitant]
     Dosage: 8 MILLIGRAM
     Route: 048
     Dates: start: 20111006, end: 20111012

REACTIONS (1)
  - ANAL FISTULA [None]
